FAERS Safety Report 9526303 (Version 1)
Quarter: 2013Q3

REPORT INFORMATION
  Report Type: Report from Study
  Country: US (occurrence: US)
  Receive Date: 20130916
  Receipt Date: 20130916
  Transmission Date: 20140515
  Serious: Yes (Other)
  Sender: FDA-Public Use
  Company Number: US-ROCHE-1271058

PATIENT
  Sex: Female
  Weight: 49.1 kg

DRUGS (8)
  1. HERCEPTIN [Suspect]
     Indication: BREAST CANCER
     Route: 065
     Dates: start: 20081229, end: 200912
  2. HERCEPTIN [Suspect]
     Route: 065
     Dates: start: 201104, end: 20110926
  3. AVASTIN [Suspect]
     Indication: METASTATIC NEOPLASM
     Route: 065
     Dates: start: 20081229
  4. DOCETAXEL [Suspect]
     Indication: BREAST CANCER
     Route: 065
     Dates: start: 20081229
  5. LAPATINIB [Concomitant]
     Indication: METASTASIS
     Route: 065
  6. GEMCITABINE [Concomitant]
     Indication: METASTATIC NEOPLASM
     Route: 065
     Dates: start: 20120202
  7. TAXOL [Concomitant]
  8. CARBOPLATIN [Concomitant]
     Route: 065

REACTIONS (33)
  - Hydronephrosis [Unknown]
  - Cardiac tamponade [Unknown]
  - Eyelid oedema [Unknown]
  - Lymphadenopathy [Unknown]
  - Superior vena cava syndrome [Unknown]
  - Ejection fraction decreased [Unknown]
  - Fatigue [Unknown]
  - Paraesthesia [Unknown]
  - Dysphonia [Unknown]
  - Lymphoedema [Unknown]
  - Dysgeusia [Unknown]
  - Nausea [Unknown]
  - Vomiting [Unknown]
  - Dry mouth [Unknown]
  - Asthenia [Unknown]
  - Abdominal pain [Unknown]
  - Abdominal pain [Unknown]
  - Dizziness [Unknown]
  - Anxiety [Unknown]
  - Alopecia [Unknown]
  - Wheezing [Unknown]
  - Rales [Unknown]
  - Oedema peripheral [Unknown]
  - Peripheral sensory neuropathy [Unknown]
  - Hypertension [Unknown]
  - Disease progression [Unknown]
  - Diarrhoea [Unknown]
  - Chills [Unknown]
  - Dysphagia [Unknown]
  - Pallor [Unknown]
  - Dry skin [Unknown]
  - Kyphosis [Unknown]
  - Gastrointestinal toxicity [Unknown]
